FAERS Safety Report 10119529 (Version 4)
Quarter: 2014Q2

REPORT INFORMATION
  Report Type: Report from Study
  Country: US (occurrence: US)
  Receive Date: 20140425
  Receipt Date: 20140522
  Transmission Date: 20141212
  Serious: Yes (Death, Hospitalization)
  Sender: FDA-Public Use
  Company Number: US-ACTELION-A-NJ2013-83320

PATIENT
  Age: 28 Year
  Sex: Female

DRUGS (3)
  1. VELETRI [Suspect]
     Indication: PULMONARY ARTERIAL HYPERTENSION
     Dosage: 22 NG/KG, PER MIN
     Route: 042
     Dates: start: 20130425
  2. VELETRI [Suspect]
     Dosage: 40 NG/KG, PER MIN
     Route: 042
     Dates: start: 20130524
  3. SILDENAFIL [Concomitant]

REACTIONS (34)
  - Death [Fatal]
  - Gastrointestinal disorder [Unknown]
  - Device malfunction [Unknown]
  - Pulmonary arterial hypertension [Unknown]
  - Condition aggravated [Unknown]
  - Cardiac failure [Unknown]
  - Haemoptysis [Unknown]
  - Headache [Unknown]
  - Ascites [Unknown]
  - Aspiration pleural cavity [Unknown]
  - Paracentesis [Unknown]
  - Catheter site inflammation [Unknown]
  - Pain in jaw [Unknown]
  - Peripheral swelling [Unknown]
  - Pain in extremity [Unknown]
  - Hypoaesthesia [Unknown]
  - Muscle spasms [Unknown]
  - Flushing [Unknown]
  - Fatigue [Unknown]
  - Nausea [Unknown]
  - Dizziness [Unknown]
  - Dizziness postural [Unknown]
  - Dyspnoea [Unknown]
  - Dyspnoea exertional [Unknown]
  - Cough [Unknown]
  - Abdominal pain [Unknown]
  - Vomiting [Unknown]
  - Dehydration [Unknown]
  - Asthenia [Unknown]
  - Chest pain [Unknown]
  - Weight increased [Unknown]
  - Blood pressure decreased [Unknown]
  - Tachycardia [Unknown]
  - Depression [Unknown]
